FAERS Safety Report 8313260-1 (Version None)
Quarter: 2012Q2

REPORT INFORMATION
  Report Type: 
  Country: None (occurrence: None)
  Receive Date: 20120424
  Receipt Date: 20120413
  Transmission Date: 20120825
  Serious: Yes (Hospitalization, Other)
  Sender: FDA-Public Use
  Company Number: 2012-000619

PATIENT
  Age: 79 Year
  Sex: Female

DRUGS (8)
  1. ASPARA-CA (ASPARTATE CALCIUM) [Concomitant]
  2. RISEDRONATE SODIUM [Suspect]
     Indication: OSTEOPOROSIS
     Dosage: 17.5 MG, 1/WEEK, ORAL
     Route: 048
     Dates: start: 20041101, end: 20101119
  3. MYONAL (EPIRIZOLE HYDROCHLORIDE) [Concomitant]
  4. BLOPRESS (CANDESARTAN CILEXETIL) [Concomitant]
  5. NORVASC [Concomitant]
  6. CELECOXIB [Concomitant]
  7. ONEALFA (ALFACALCIDOL) [Concomitant]
  8. LANSOPRAZOLE [Concomitant]

REACTIONS (3)
  - BONE PAIN [None]
  - FEMUR FRACTURE [None]
  - TRAUMATIC FRACTURE [None]
